FAERS Safety Report 8254894 (Version 2)
Quarter: 2016Q1

REPORT INFORMATION
  Report Type: Report from Study
  Country: US (occurrence: US)
  Receive Date: 20111118
  Receipt Date: 20160208
  Transmission Date: 20160526
  Serious: Yes (Hospitalization, Other)
  Sender: FDA-Public Use
  Company Number: US-ROCHE-1014316

PATIENT
  Age: 45 Year

DRUGS (4)
  1. TRASTUZUMAB [Suspect]
     Active Substance: TRASTUZUMAB
     Dosage: OVER 30 MINUTES FOR EVERY WEEK ON DAY 1 FOR 4 WEEKS, EVERY 4 WEEK
     Route: 042
  2. COUMADIN [Suspect]
     Active Substance: WARFARIN SODIUM
     Indication: NEOPLASM MALIGNANT
     Route: 065
  3. TIPIFARNIB [Suspect]
     Active Substance: TIPIFARNIB
     Indication: NEOPLASM MALIGNANT
     Dosage: FOR EVERY 12 HOURS  FOR 3 WEEKS FOR EVERY 4 WEEKS
     Route: 048
  4. TRASTUZUMAB [Suspect]
     Active Substance: TRASTUZUMAB
     Indication: NEOPLASM MALIGNANT
     Dosage: OVER 90 MINUTES ON DAY 1 OF CYCLE 1
     Route: 042
     Dates: start: 20000707

REACTIONS (5)
  - Vomiting [Unknown]
  - Anaemia [Unknown]
  - Diarrhoea [Unknown]
  - Nausea [Unknown]
  - Gastritis [Unknown]

NARRATIVE: CASE EVENT DATE: 20000724
